FAERS Safety Report 8507982-7 (Version None)
Quarter: 2012Q3

REPORT INFORMATION
  Report Type: 
  Country: None (occurrence: None)
  Receive Date: 20120713
  Receipt Date: 20120702
  Transmission Date: 20120928
  Serious: Yes (Other)
  Sender: FDA-Public Use
  Company Number: JP-AMGEN-JPNCT2012043052

PATIENT
  Age: 74 Year
  Sex: Male
  Weight: 52 kg

DRUGS (29)
  1. DARBEPOETIN ALFA - KHK [Suspect]
     Dosage: 60 MUG, UNK
     Route: 040
     Dates: start: 20110427, end: 20110427
  2. CALBLOCK [Concomitant]
     Indication: HYPERTENSION
     Dosage: UNCERTAINTY
     Route: 048
  3. ALLOPURINOL [Concomitant]
     Indication: HYPERURICAEMIA
     Dosage: UNCERTAINTY
     Route: 048
  4. DARBEPOETIN ALFA - KHK [Suspect]
     Dosage: 60 MUG, UNK
     Route: 040
     Dates: start: 20110323, end: 20110323
  5. DARBEPOETIN ALFA - KHK [Suspect]
     Dosage: 60 MUG, UNK
     Route: 040
     Dates: start: 20110824, end: 20110921
  6. ISOSORBIDE MONONITRATE [Concomitant]
     Indication: ANGINA PECTORIS
     Dosage: UNCERTAINTY
     Route: 048
  7. NORVASC [Concomitant]
     Indication: HYPERTENSION
     Dosage: UNCERTAINTY
     Route: 048
  8. PRAVASTATIN [Concomitant]
     Indication: HYPERLIPIDAEMIA
     Dosage: UNCERTAINTY
     Route: 048
  9. DARBEPOETIN ALFA - KHK [Suspect]
     Dosage: 60 MUG, UNK
     Route: 040
     Dates: start: 20110119, end: 20110119
  10. LANTUS [Concomitant]
     Indication: DIABETES MELLITUS
     Dosage: UNCERTAINTY
     Route: 065
  11. PLAVIX [Concomitant]
     Dosage: UNCERTAINTY
     Route: 048
  12. FOLIAMIN [Concomitant]
     Indication: FOLATE DEFICIENCY
     Dosage: UNCERTAINTY
     Route: 048
  13. NOVORAPID [Concomitant]
     Indication: DIABETES MELLITUS
     Dosage: UNCERTAINTY
     Route: 065
  14. DARBEPOETIN ALFA - KHK [Suspect]
     Dosage: 60 MUG, UNK
     Dates: start: 20111116
  15. DARBEPOETIN ALFA - KHK [Suspect]
     Dosage: 60 MUG, UNK
     Dates: start: 20111128
  16. LANSOPRAZOLE [Concomitant]
     Dosage: UNCERTAINTY
     Route: 048
  17. DARBEPOETIN ALFA - KHK [Suspect]
     Indication: NEPHROGENIC ANAEMIA
     Dosage: 60 MUG, UNK
     Route: 040
     Dates: start: 20101208, end: 20101208
  18. DARBEPOETIN ALFA - KHK [Suspect]
     Dosage: 60 MUG, UNK
     Route: 040
     Dates: start: 20110106, end: 20110106
  19. DARBEPOETIN ALFA - KHK [Suspect]
     Dosage: 60 MUG, UNK
     Dates: start: 20111102
  20. FUROSEMIDE [Concomitant]
     Indication: HYPERTENSION
     Dosage: UNCERTAINTY
     Route: 048
  21. CALCIUM LACTATE [Concomitant]
     Dosage: 6G/DAY
     Route: 048
     Dates: end: 20110712
  22. DARBEPOETIN ALFA - KHK [Suspect]
     Dosage: 60 MUG, UNK
     Route: 058
     Dates: start: 20110526, end: 20110608
  23. DARBEPOETIN ALFA - KHK [Suspect]
     Dosage: 60 MUG, UNK
     Route: 040
     Dates: start: 20110713, end: 20110727
  24. DARBEPOETIN ALFA - KHK [Suspect]
     Dosage: 60 MUG, UNK
     Route: 040
     Dates: start: 20111005
  25. DARBEPOETIN ALFA - KHK [Suspect]
     Dosage: 60 MUG, UNK
     Dates: start: 20111019
  26. SIGMART [Concomitant]
     Indication: ANGINA PECTORIS
     Dosage: UNCERTAINTY
     Route: 048
  27. SODIUM BICARBONATE [Concomitant]
     Dosage: UNCERTAINTY
     Route: 048
  28. IRBESARTAN [Concomitant]
     Indication: HYPERTENSION
     Dosage: UNCERTAINTY
     Route: 048
  29. ARICEPT [Concomitant]
     Indication: DEMENTIA
     Dosage: UNCERTAINTY
     Route: 048

REACTIONS (4)
  - HYPOCALCAEMIA [None]
  - HYPERPARATHYROIDISM SECONDARY [None]
  - RENAL FAILURE CHRONIC [None]
  - CARDIAC FAILURE CHRONIC [None]
